FAERS Safety Report 21637006 (Version 1)
Quarter: 2022Q4

REPORT INFORMATION
  Report Type: Spontaneous
  Country: US (occurrence: US)
  Receive Date: 20221124
  Receipt Date: 20221124
  Transmission Date: 20230113
  Serious: No
  Sender: FDA-Public Use
  Company Number: US-TWI PHARMACEUTICAL, INC-2022SCTW000089

PATIENT

DRUGS (5)
  1. TESTOSTERONE [Suspect]
     Active Substance: TESTOSTERONE
     Indication: Hypogonadism
     Dosage: 3 PUMPS, OD ON HIS ARMS (2 PUMPS ON ONE ARM AND 1 PUMP ON THE OTHER ARM)
     Route: 062
     Dates: start: 20220621, end: 20220722
  2. TESTOSTERONE [Suspect]
     Active Substance: TESTOSTERONE
     Dosage: 3 PUMPS, OD ON HIS ARMS (2 PUMPS ON ONE ARM AND 1 PUMP ON THE OTHER ARM)
     Route: 062
     Dates: start: 20220722, end: 20220901
  3. TESTOSTERONE [Suspect]
     Active Substance: TESTOSTERONE
     Dosage: 3 PUMPS, OD ON HIS ARMS (2 PUMPS ON ONE ARM AND 1 PUMP ON THE OTHER ARM)
     Route: 062
     Dates: start: 20220901, end: 20221018
  4. TESTOSTERONE [Suspect]
     Active Substance: TESTOSTERONE
     Dosage: 3 PUMPS, OD ON HIS ARMS (2 PUMPS ON ONE ARM AND 1 PUMP ON THE OTHER ARM)
     Route: 062
     Dates: start: 20221018
  5. TESTOSTERONE [Suspect]
     Active Substance: TESTOSTERONE
     Dosage: 4 PUMPS, OD ON HIS ARMS
     Route: 062

REACTIONS (1)
  - Drug ineffective [Unknown]
